FAERS Safety Report 7113352-9 (Version None)
Quarter: 2010Q4

REPORT INFORMATION
  Report Type: 
  Country: None (occurrence: None)
  Receive Date: 20101119
  Receipt Date: 20101111
  Transmission Date: 20110411
  Serious: Yes (Other)
  Sender: FDA-Public Use
  Company Number: US-JNJFOC-20100906272

PATIENT
  Sex: Female
  Weight: 44 kg

DRUGS (6)
  1. REMICADE [Suspect]
     Indication: PSORIATIC ARTHROPATHY
     Route: 042
  2. REMICADE [Suspect]
     Route: 042
  3. REMICADE [Suspect]
     Indication: PSORIASIS
     Route: 042
  4. REMICADE [Suspect]
     Route: 042
  5. ROXICET [Concomitant]
     Indication: HEADACHE
     Route: 048
  6. EXCEDRIN (MIGRAINE) [Concomitant]
     Indication: HEADACHE
     Route: 048

REACTIONS (7)
  - BACK PAIN [None]
  - COUGH [None]
  - DIZZINESS [None]
  - FATIGUE [None]
  - PAIN IN EXTREMITY [None]
  - PAIN IN JAW [None]
  - VISION BLURRED [None]
